FAERS Safety Report 9769066 (Version 1)
Quarter: 2013Q4

REPORT INFORMATION
  Report Type: Report from Study
  Country: CA (occurrence: CA)
  Receive Date: 20131218
  Receipt Date: 20131218
  Transmission Date: 20140711
  Serious: Yes (Other)
  Sender: FDA-Public Use
  Company Number: CA-JNJFOC-20131207007

PATIENT
  Age: 34 Year
  Sex: Female
  Weight: 47 kg

DRUGS (2)
  1. REMICADE [Suspect]
     Indication: CROHN^S DISEASE
     Route: 042
     Dates: start: 20110517
  2. SOLU MEDROL [Concomitant]
     Indication: PREMEDICATION
     Route: 042

REACTIONS (1)
  - Intestinal stenosis [Recovering/Resolving]
